FAERS Safety Report 17869233 (Version 7)
Quarter: 2022Q1

REPORT INFORMATION
  Report Type: Other
  Country: GB (occurrence: GB)
  Receive Date: 20200608
  Receipt Date: 20220310
  Transmission Date: 20220424
  Serious: Yes (Other)
  Sender: FDA-Public Use
  Company Number: GB-JNJFOC-20200518527

PATIENT

DRUGS (16)
  1. DEXAMETHASONE [Suspect]
     Active Substance: DEXAMETHASONE
     Indication: Plasma cell myeloma
     Dosage: UNK
     Route: 048
     Dates: start: 201502, end: 201508
  2. THALIDOMIDE [Suspect]
     Active Substance: THALIDOMIDE
     Indication: Plasma cell myeloma
     Dosage: UNK
     Route: 048
     Dates: start: 201502, end: 201508
  3. THALIDOMIDE [Suspect]
     Active Substance: THALIDOMIDE
     Dosage: UNK
     Route: 065
     Dates: start: 201502, end: 201508
  4. THALIDOMIDE [Suspect]
     Active Substance: THALIDOMIDE
     Dosage: UNK
     Route: 065
     Dates: start: 201502, end: 201508
  5. VELCADE [Suspect]
     Active Substance: BORTEZOMIB
     Indication: Plasma cell myeloma
     Dosage: UNK
     Route: 042
     Dates: start: 201502, end: 201508
  6. VELCADE [Suspect]
     Active Substance: BORTEZOMIB
     Dosage: UNK
     Route: 042
     Dates: start: 201502, end: 201508
  7. VELCADE [Suspect]
     Active Substance: BORTEZOMIB
     Dosage: UNK
     Route: 065
  8. VELCADE [Suspect]
     Active Substance: BORTEZOMIB
     Dosage: UNK
     Route: 065
     Dates: start: 201502, end: 201508
  9. NINLARO [Suspect]
     Active Substance: IXAZOMIB CITRATE
     Indication: Plasma cell myeloma
     Dosage: 4 MG 25 CYCLES
     Route: 048
     Dates: start: 20151127, end: 20171109
  10. NINLARO [Suspect]
     Active Substance: IXAZOMIB CITRATE
     Dosage: 4 MG 25 CYCLES, TABLET
     Route: 048
     Dates: start: 201502, end: 201508
  11. NINLARO [Suspect]
     Active Substance: IXAZOMIB CITRATE
     Dosage: 25 CYCLES
     Route: 048
     Dates: start: 201502, end: 201508
  12. NINLARO [Suspect]
     Active Substance: IXAZOMIB CITRATE
     Dosage: UNK UNK, QCY
     Route: 048
     Dates: start: 201502, end: 201508
  13. NINLARO [Suspect]
     Active Substance: IXAZOMIB CITRATE
     Dosage: 4 MG, OTHER
     Route: 048
     Dates: start: 20151127, end: 20171109
  14. NINLARO [Suspect]
     Active Substance: IXAZOMIB CITRATE
     Dosage: 4 MG 25 CYCLES, CAPSULE
     Route: 048
     Dates: start: 201502, end: 201508
  15. NINLARO [Suspect]
     Active Substance: IXAZOMIB CITRATE
     Dosage: 4 MG TABLET
     Route: 048
     Dates: start: 201502, end: 201508
  16. NINLARO [Suspect]
     Active Substance: IXAZOMIB CITRATE
     Indication: Plasma cell myeloma
     Dosage: 4 MILLIGRAM, 25 CYCLES
     Route: 048
     Dates: start: 201502, end: 201508

REACTIONS (2)
  - Off label use [Unknown]
  - Myelodysplastic syndrome [Not Recovered/Not Resolved]

NARRATIVE: CASE EVENT DATE: 20150201
